FAERS Safety Report 9587220 (Version 2)
Quarter: 2013Q4

REPORT INFORMATION
  Report Type: Spontaneous
  Country: CN (occurrence: CN)
  Receive Date: 20131003
  Receipt Date: 20131107
  Transmission Date: 20140711
  Serious: Yes (Other)
  Sender: FDA-Public Use
  Company Number: CN-GLAXOSMITHKLINE-B0926811A

PATIENT
  Sex: Female
  Weight: 60 kg

DRUGS (1)
  1. HEPTODIN [Suspect]
     Indication: HEPATITIS B
     Dosage: 1TAB PER DAY
     Route: 048
     Dates: start: 2009

REACTIONS (6)
  - Hepatic cirrhosis [Unknown]
  - Splenectomy [Unknown]
  - Portal hypertension [Unknown]
  - Haematemesis [Unknown]
  - Weight decreased [Not Recovered/Not Resolved]
  - Alopecia [Recovering/Resolving]
